FAERS Safety Report 8485394-2 (Version None)
Quarter: 2012Q3

REPORT INFORMATION
  Report Type: 
  Country: None (occurrence: None)
  Receive Date: 20120703
  Receipt Date: 20120626
  Transmission Date: 20120928
  Serious: Yes (Other)
  Sender: FDA-Public Use
  Company Number: PHHY2011CA88201

PATIENT
  Sex: Female
  Weight: 64.853 kg

DRUGS (10)
  1. CODEINE SULFATE [Concomitant]
  2. GILENYA [Suspect]
     Dosage: 0.5 MG, QD
     Route: 048
     Dates: start: 20120216, end: 20120616
  3. OXYBUTYN [Concomitant]
  4. LORAZEPAM [Concomitant]
     Dosage: 1 MG, UNK
  5. DITROPAN [Concomitant]
     Dosage: 5 MG, UNK
  6. GILENYA [Suspect]
     Indication: RELAPSING-REMITTING MULTIPLE SCLEROSIS
     Dosage: 0.5 MG, QD
     Route: 048
     Dates: start: 20110901, end: 20120101
  7. AMITRIPTYLINE HCL [Concomitant]
     Dosage: 20 MG, UNK
  8. ATIVAN [Concomitant]
  9. MORPHINE [Concomitant]
  10. DEMEROL [Concomitant]

REACTIONS (15)
  - THYROID FUNCTION TEST ABNORMAL [None]
  - BLOOD PRESSURE INCREASED [None]
  - BALANCE DISORDER [None]
  - WEIGHT INCREASED [None]
  - FALL [None]
  - FEELING ABNORMAL [None]
  - LIP BLISTER [None]
  - NAUSEA [None]
  - BLOOD IRON DECREASED [None]
  - WHITE BLOOD CELL COUNT DECREASED [None]
  - FATIGUE [None]
  - ORAL MUCOSAL BLISTERING [None]
  - VISION BLURRED [None]
  - DIARRHOEA [None]
  - HEADACHE [None]
